FAERS Safety Report 11523198 (Version 3)
Quarter: 2016Q1

REPORT INFORMATION
  Report Type: Spontaneous
  Country: US (occurrence: US)
  Receive Date: 20150918
  Receipt Date: 20160308
  Transmission Date: 20160525
  Serious: Yes (Hospitalization, Other)
  Sender: FDA-Public Use
  Company Number: US-009507513-1509USA008549

PATIENT
  Age: 22 Year
  Sex: Female
  Weight: 53.97 kg

DRUGS (1)
  1. NEXPLANON [Suspect]
     Active Substance: ETONOGESTREL
     Indication: CONTRACEPTION
     Dosage: 1 INSERT/ONCE PER THREE YEARS
     Route: 059
     Dates: start: 20141201, end: 20150214

REACTIONS (4)
  - Malaise [Recovered/Resolved]
  - Respiratory disorder [Unknown]
  - Urticaria [Recovered/Resolved]
  - Implant site pruritus [Recovered/Resolved]

NARRATIVE: CASE EVENT DATE: 201412
